FAERS Safety Report 11718494 (Version 1)
Quarter: 2015Q4

REPORT INFORMATION
  Report Type: Spontaneous
  Country: US (occurrence: None)
  Receive Date: 20151109
  Receipt Date: 20151109
  Transmission Date: 20160304
  Serious: No
  Sender: FDA-Public Use
  Company Number: None

PATIENT
  Age: 43 Year
  Sex: Female

DRUGS (1)
  1. ENBREL [Suspect]
     Active Substance: ETANERCEPT
     Indication: RHEUMATOID ARTHRITIS
     Dosage: 50 MG/ML WEEKLY INJ
     Dates: start: 201509, end: 201510

REACTIONS (3)
  - Injection site urticaria [None]
  - Migraine [None]
  - Injection site reaction [None]

NARRATIVE: CASE EVENT DATE: 20151010
